FAERS Safety Report 19780816 (Version 1)
Quarter: 2021Q3

REPORT INFORMATION
  Report Type: Spontaneous
  Country: IN (occurrence: IN)
  Receive Date: 20210903
  Receipt Date: 20210903
  Transmission Date: 20211014
  Serious: No
  Sender: FDA-Public Use
  Company Number: IN-LUPIN PHARMACEUTICALS INC.-2021-16254

PATIENT
  Age: 30 Year
  Sex: Male

DRUGS (6)
  1. IVERMECTIN. [Suspect]
     Active Substance: IVERMECTIN
     Indication: COVID-19
     Dosage: 12 MILLIGRAM, QD
     Route: 048
     Dates: start: 2020, end: 2020
  2. HYDROXYCHLOROQUINE [Suspect]
     Active Substance: HYDROXYCHLOROQUINE
     Dosage: 200 MILLIGRAM, QD
     Route: 065
     Dates: start: 202006, end: 202007
  3. HYDROXYCHLOROQUINE [Suspect]
     Active Substance: HYDROXYCHLOROQUINE
     Indication: COVID-19
     Dosage: 400 MILLIGRAM, BID (LOADING DOSE)
     Route: 065
     Dates: start: 202006, end: 202006
  4. VITAMIN C [Concomitant]
     Active Substance: ASCORBIC ACID
     Indication: SUPPORTIVE CARE
     Dosage: UNK
     Route: 065
     Dates: start: 2020
  5. ZINC. [Concomitant]
     Active Substance: ZINC
     Indication: SUPPORTIVE CARE
     Dosage: UNK
     Route: 065
     Dates: start: 2020
  6. PARACETAMOL [Concomitant]
     Active Substance: ACETAMINOPHEN
     Indication: SUPPORTIVE CARE
     Dosage: UNK
     Route: 065
     Dates: start: 2020

REACTIONS (1)
  - Off label use [Unknown]

NARRATIVE: CASE EVENT DATE: 2020
